FAERS Safety Report 19189669 (Version 1)
Quarter: 2021Q2

REPORT INFORMATION
  Report Type: Spontaneous
  Country: US (occurrence: US)
  Receive Date: 20210428
  Receipt Date: 20210428
  Transmission Date: 20210717
  Serious: Yes (Other)
  Sender: FDA-Public Use
  Company Number: US-PFIZER INC-2021423555

PATIENT
  Age: 22 Year
  Sex: Female
  Weight: 82.55 kg

DRUGS (6)
  1. KORLYM [Suspect]
     Active Substance: MIFEPRISTONE
     Indication: CUSHING^S SYNDROME
     Dosage: 300 MG
     Dates: start: 20201105
  2. ERGOCALCIFEROL. [Concomitant]
     Active Substance: ERGOCALCIFEROL
     Dosage: UNK
  3. LEVOTHYROXINE. [Concomitant]
     Active Substance: LEVOTHYROXINE
     Dosage: UNK
  4. SPIRONOLACTONE. [Suspect]
     Active Substance: SPIRONOLACTONE
     Indication: CUSHING^S SYNDROME
     Dosage: UNK
     Dates: start: 2005
  5. NEXPLANON [Concomitant]
     Active Substance: ETONOGESTREL
     Dosage: UNK
  6. ANGELIQ [Concomitant]
     Active Substance: DROSPIRENONE\ESTRADIOL
     Dosage: UNK

REACTIONS (9)
  - Nephrolithiasis [Unknown]
  - Autoimmune thyroiditis [Unknown]
  - Hypovitaminosis [Unknown]
  - Cardiac flutter [Unknown]
  - Fluid retention [Unknown]
  - Obesity [Unknown]
  - Product dose omission issue [Unknown]
  - Polycystic ovaries [Unknown]
  - Dizziness [Unknown]

NARRATIVE: CASE EVENT DATE: 20201105
